FAERS Safety Report 8248634-0 (Version None)
Quarter: 2012Q1

REPORT INFORMATION
  Report Type: 
  Country: None (occurrence: None)
  Receive Date: 20120331
  Receipt Date: 20120319
  Transmission Date: 20120608
  Serious: Yes (Hospitalization, Disabling, Other)
  Sender: FDA-Public Use
  Company Number: US-MYLANLABS-2012S1006787

PATIENT
  Sex: Male

DRUGS (17)
  1. CYCLOSPORINE [Concomitant]
  2. LEVAQUIN [Concomitant]
  3. ATROPINE [Concomitant]
  4. PROGRAF [Concomitant]
  5. RAPAMUNE [Concomitant]
  6. URSODIOL [Concomitant]
  7. VANCOMYCIN [Concomitant]
  8. COUMADIN [Concomitant]
  9. NEXIUM [Concomitant]
  10. FOLIC ACID [Concomitant]
  11. MAG-OX [Concomitant]
  12. INTERFERON [Concomitant]
  13. HALDOL [Concomitant]
  14. DIGOXIN [Suspect]
     Route: 048
     Dates: start: 19860101, end: 20080124
  15. LACTULOSE [Concomitant]
  16. KAYEXALATE [Concomitant]
  17. METOPROLOL SUCCINATE [Concomitant]

REACTIONS (56)
  - TOXICITY TO VARIOUS AGENTS [None]
  - HEPATITIS C [None]
  - ADVERSE DRUG REACTION [None]
  - PLEURAL EFFUSION [None]
  - OSTEOPOROSIS [None]
  - ABDOMINAL DISTENSION [None]
  - HYPERKALAEMIA [None]
  - HEPATIC CIRRHOSIS [None]
  - LUNG DISORDER [None]
  - DIABETES MELLITUS [None]
  - BACK PAIN [None]
  - GASTROOESOPHAGEAL REFLUX DISEASE [None]
  - ECHOCARDIOGRAM ABNORMAL [None]
  - SPLENIC VARICES [None]
  - HEPATIC ENCEPHALOPATHY [None]
  - RHONCHI [None]
  - GENERAL PHYSICAL HEALTH DETERIORATION [None]
  - INJURY [None]
  - ANHEDONIA [None]
  - ANTICOAGULATION DRUG LEVEL ABOVE THERAPEUTIC [None]
  - CORONARY ARTERY BYPASS [None]
  - ASBESTOSIS [None]
  - LABORATORY TEST ABNORMAL [None]
  - METASTASIS [None]
  - PULMONARY HYPERTENSION [None]
  - CARDIAC VALVE DISEASE [None]
  - CORONARY ARTERY DISEASE [None]
  - MALIGNANT MELANOMA [None]
  - FEELING ABNORMAL [None]
  - PULMONARY CONGESTION [None]
  - AORTIC VALVE REPLACEMENT [None]
  - COUGH [None]
  - CARDIAC MURMUR [None]
  - ATELECTASIS [None]
  - PORTAL HYPERTENSION [None]
  - OSTEOPENIA [None]
  - ABDOMINAL PAIN [None]
  - BRADYCARDIA [None]
  - BASAL CELL CARCINOMA [None]
  - MENTAL STATUS CHANGES [None]
  - COMPUTERISED TOMOGRAM THORAX ABNORMAL [None]
  - SPLENOMEGALY [None]
  - NEPHROLITHIASIS [None]
  - RENAL FAILURE ACUTE [None]
  - HEARING IMPAIRED [None]
  - NICOTINE DEPENDENCE [None]
  - PAIN [None]
  - HYPERGLYCAEMIA [None]
  - DECREASED APPETITE [None]
  - ECONOMIC PROBLEM [None]
  - SYNCOPE [None]
  - COMPRESSION FRACTURE [None]
  - PULMONARY ARTERIAL PRESSURE INCREASED [None]
  - SPINAL OSTEOARTHRITIS [None]
  - ARTHRITIS [None]
  - BODY HEIGHT DECREASED [None]
